FAERS Safety Report 8419874-2 (Version None)
Quarter: 2012Q2

REPORT INFORMATION
  Report Type: 
  Country: None (occurrence: None)
  Receive Date: 20120607
  Receipt Date: 20120604
  Transmission Date: 20120825
  Serious: Yes (Other)
  Sender: FDA-Public Use
  Company Number: US-PFIZER INC-2012133945

PATIENT
  Sex: Male

DRUGS (3)
  1. ULTRAM [Concomitant]
     Dosage: 100 MG, 4X/DAY (100 MG 1 PO QID)
     Route: 048
  2. HUMALOG [Concomitant]
     Dosage: UNK, 2X/DAY (75/25 25 UNITS BID)
  3. LYRICA [Suspect]
     Dosage: 100 MG, 3X/DAY
     Route: 048

REACTIONS (2)
  - IMPAIRED WORK ABILITY [None]
  - NEUROPATHY PERIPHERAL [None]
